FAERS Safety Report 7293754-0 (Version None)
Quarter: 2011Q1

REPORT INFORMATION
  Report Type: 
  Country: None (occurrence: None)
  Receive Date: 20110203
  Receipt Date: 20110119
  Transmission Date: 20110831
  Serious: Yes (Hospitalization)
  Sender: FDA-Public Use
  Company Number: AUR-APL-2010-02703

PATIENT
  Age: 64 Year
  Sex: Male

DRUGS (3)
  1. SERTRALINE [Suspect]
     Dosage: 50MG-DAILY-ORAL
     Route: 048
     Dates: start: 20101012
  2. CO-CODAMOL [Concomitant]
  3. OMEPRAZOLE [Concomitant]

REACTIONS (3)
  - PEPTIC ULCER HAEMORRHAGE [None]
  - HELICOBACTER INFECTION [None]
  - CHOLECYSTITIS [None]
